FAERS Safety Report 26109776 (Version 1)
Quarter: 2025Q4

REPORT INFORMATION
  Report Type: Spontaneous
  Country: US (occurrence: US)
  Receive Date: 20251201
  Receipt Date: 20251201
  Transmission Date: 20260118
  Serious: Yes (Hospitalization, Other)
  Sender: NOVO NORDISK
  Company Number: US-NOVOPROD-1573388

PATIENT
  Age: 58 Year
  Sex: Female

DRUGS (1)
  1. NOVOLOG [Suspect]
     Active Substance: INSULIN ASPART
     Indication: Type 2 diabetes mellitus
     Dosage: SLIDING SCALE 3X A DAY. SMALL MEALS STARTS AT 9, MED MEALS STARTS AT 11 AND LARGE MEALS I START AT 1
     Route: 058
     Dates: start: 2010

REACTIONS (3)
  - Fall [Recovered/Resolved]
  - Vertebroplasty [Recovering/Resolving]
  - Fall [Unknown]

NARRATIVE: CASE EVENT DATE: 20251029
